FAERS Safety Report 17976499 (Version 2)
Quarter: 2020Q4

REPORT INFORMATION
  Report Type: Report from Study
  Country: None (occurrence: US)
  Receive Date: 20200703
  Receipt Date: 20201007
  Transmission Date: 20210113
  Serious: Yes (Hospitalization)
  Sender: FDA-Public Use
  Company Number: US-ABBVIE-20K-163-3468543-00

PATIENT
  Sex: Male
  Weight: 129.39 kg

DRUGS (11)
  1. WARFARIN [Concomitant]
     Active Substance: WARFARIN
     Indication: DIABETES MELLITUS
  2. LANTUS [Concomitant]
     Active Substance: INSULIN GLARGINE
     Indication: DIABETES MELLITUS
  3. FLUTICASONE. [Concomitant]
     Active Substance: FLUTICASONE
     Indication: HYPERSENSITIVITY
  4. HUMIRA [Suspect]
     Active Substance: ADALIMUMAB
     Indication: PSORIASIS
     Dosage: CITRATE FREE
     Route: 058
     Dates: end: 2020
  5. ONGLYZA [Concomitant]
     Active Substance: SAXAGLIPTIN HYDROCHLORIDE
     Indication: DIABETES MELLITUS
  6. LIPITOR [Concomitant]
     Active Substance: ATORVASTATIN CALCIUM
     Indication: BLOOD CHOLESTEROL INCREASED
  7. COREG [Concomitant]
     Active Substance: CARVEDILOL
     Indication: HYPERTENSION
  8. METFORMIN [Concomitant]
     Active Substance: METFORMIN HYDROCHLORIDE
     Indication: DIABETES MELLITUS
  9. AVAPRO [Concomitant]
     Active Substance: IRBESARTAN
     Indication: HYPERTENSION
  10. ZIRTEK [Concomitant]
     Active Substance: CETIRIZINE HYDROCHLORIDE
     Indication: HYPERSENSITIVITY
  11. LASIX [Concomitant]
     Active Substance: FUROSEMIDE
     Indication: HYPERTENSION

REACTIONS (4)
  - Pulmonary hypertension [Unknown]
  - Pulmonary thrombosis [Unknown]
  - Pneumonia [Unknown]
  - Pulmonary embolism [Unknown]
